FAERS Safety Report 23759836 (Version 4)
Quarter: 2024Q3

REPORT INFORMATION
  Report Type: Report from Study
  Country: BR (occurrence: BR)
  Receive Date: 20240419
  Receipt Date: 20240730
  Transmission Date: 20241017
  Serious: Yes (Hospitalization)
  Sender: AMGEN
  Company Number: BR-AMGEN-BRASL2024075143

PATIENT
  Age: 55 Year
  Sex: Female

DRUGS (1)
  1. VECTIBIX [Suspect]
     Active Substance: PANITUMUMAB
     Indication: Gastrointestinal cancer metastatic
     Dosage: UNK 15 DAYS
     Route: 042
     Dates: start: 20240325, end: 202407

REACTIONS (16)
  - Functional gastrointestinal disorder [Recovering/Resolving]
  - Constipation [Recovering/Resolving]
  - Burning sensation [Recovering/Resolving]
  - Discomfort [Recovering/Resolving]
  - Acne pustular [Recovering/Resolving]
  - Swelling of eyelid [Unknown]
  - Feeding disorder [Unknown]
  - Muscle spasms [Unknown]
  - Vomiting [Recovering/Resolving]
  - Nausea [Recovering/Resolving]
  - Dry skin [Recovering/Resolving]
  - Skin fissures [Unknown]
  - Weight decreased [Unknown]
  - Asthenia [Unknown]
  - Acne [Unknown]
  - Hepatectomy [Unknown]

NARRATIVE: CASE EVENT DATE: 20240101
